FAERS Safety Report 7354498-X (Version None)
Quarter: 2011Q1

REPORT INFORMATION
  Report Type: 
  Country: None (occurrence: None)
  Receive Date: 20110316
  Receipt Date: 20110308
  Transmission Date: 20110831
  Serious: Yes (Death, Other)
  Sender: FDA-Public Use
  Company Number: US-JNJFOC-981007-107013867

PATIENT
  Age: 40 Year
  Sex: Female

DRUGS (2)
  1. TRAMADOL HCL [Suspect]
     Indication: ILL-DEFINED DISORDER
     Route: 048
  2. COCAINE [Suspect]
     Indication: ILL-DEFINED DISORDER
     Route: 065

REACTIONS (7)
  - CEREBRAL HAEMORRHAGE [None]
  - UNRESPONSIVE TO STIMULI [None]
  - CORNEAL REFLEX DECREASED [None]
  - RESPIRATORY FAILURE [None]
  - COMA [None]
  - GRAND MAL CONVULSION [None]
  - AGGRESSION [None]
